FAERS Safety Report 22381057 (Version 1)
Quarter: 2023Q2

REPORT INFORMATION
  Report Type: Other
  Country: ES (occurrence: ES)
  Receive Date: 20230530
  Receipt Date: 20230530
  Transmission Date: 20230722
  Serious: Yes (Other)
  Sender: FDA-Public Use
  Company Number: ES-DEXPHARM-20231202

PATIENT
  Age: 47 Year
  Sex: Female

DRUGS (3)
  1. OMEPRAZOLE [Suspect]
     Active Substance: OMEPRAZOLE
     Indication: Tooth abscess
     Dosage: ONE CAPSULE A DAY
     Route: 048
  2. METAMIZOLE [Concomitant]
     Active Substance: METAMIZOLE
     Indication: Tooth abscess
     Dosage: ONE CAPSULE EVERY EIGHT HOURS
     Route: 048
  3. METRONIDAZOLE [Concomitant]
     Active Substance: METRONIDAZOLE
     Indication: Tooth abscess
     Dosage: TWO TABLETS EVERY EIGHT HOURS
     Route: 048

REACTIONS (6)
  - Oedema peripheral [Unknown]
  - Pruritus [Unknown]
  - Erythema multiforme [Unknown]
  - Aphonia [Unknown]
  - Sensation of foreign body [Unknown]
  - Angioedema [Unknown]
